FAERS Safety Report 9292918 (Version 1)
Quarter: 2013Q2

REPORT INFORMATION
  Report Type: Spontaneous
  Country: TR (occurrence: TR)
  Receive Date: 20130516
  Receipt Date: 20130516
  Transmission Date: 20140414
  Serious: Yes (Other)
  Sender: FDA-Public Use
  Company Number: TR-PFIZER INC-2013146315

PATIENT
  Age: 52 Year
  Sex: Male

DRUGS (2)
  1. CEFTRIAXONE SODIUM [Suspect]
     Indication: INFECTION PROPHYLAXIS
     Dosage: UNK
     Route: 042
  2. METRONIDAZOLE [Suspect]
     Indication: INFECTION PROPHYLAXIS
     Dosage: UNK

REACTIONS (3)
  - Status epilepticus [Unknown]
  - Confusional state [Unknown]
  - Disorientation [Unknown]
